FAERS Safety Report 9942990 (Version 1)
Quarter: 2014Q1

REPORT INFORMATION
  Report Type: Report from Study
  Country: US (occurrence: US)
  Receive Date: 20140303
  Receipt Date: 20140303
  Transmission Date: 20141002
  Serious: No
  Sender: FDA-Public Use
  Company Number: US-ABBVIE-13P-163-1046352-00

PATIENT
  Age: 62 Year
  Sex: Female

DRUGS (11)
  1. HUMIRA [Suspect]
     Indication: GUTTATE PSORIASIS
     Dosage: LOADING DOSE
     Dates: start: 20130125
  2. HUMIRA [Suspect]
     Dates: start: 20130202
  3. VALTREX [Concomitant]
     Indication: HERPES VIRUS INFECTION
  4. HYDROCODONE [Concomitant]
     Indication: PAIN
  5. OXYCODONE [Concomitant]
     Indication: PAIN
  6. CITRACAL [Concomitant]
     Indication: VITAMIN SUPPLEMENTATION
  7. TRIAMCINOLONE ACETONIDE [Concomitant]
     Indication: PRODUCT USED FOR UNKNOWN INDICATION
     Dosage: APPLY DAILY TO AFFECTED AREAS
  8. CLOBETASOL PROPIONATE [Concomitant]
     Indication: PSORIASIS
  9. TACLONEX [Concomitant]
     Indication: PSORIASIS
  10. CORTISONE VALERATE [Concomitant]
     Indication: PSORIASIS
  11. UNKNOWN LOTION [Concomitant]
     Indication: PSORIASIS

REACTIONS (3)
  - Injection site rash [Unknown]
  - Injection site rash [Not Recovered/Not Resolved]
  - Lymphadenopathy [Not Recovered/Not Resolved]
